FAERS Safety Report 5194960-1 (Version None)
Quarter: 2006Q4

REPORT INFORMATION
  Report Type: 
  Country: None (occurrence: None)
  Receive Date: 20061229
  Receipt Date: 20061116
  Transmission Date: 20070319
  Serious: Yes (Hospitalization, Other)
  Sender: FDA-Public Use
  Company Number: JP-BRISTOL-MYERS SQUIBB COMPANY-13582796

PATIENT
  Age: 5 Year
  Sex: Male

DRUGS (9)
  1. PARAPLATIN [Suspect]
     Indication: NEUROBLASTOMA
     Route: 041
     Dates: start: 20051214, end: 20051217
  2. IFOMIDE [Suspect]
     Indication: NEUROBLASTOMA
     Route: 041
     Dates: start: 20050906, end: 20050910
  3. LASTET [Suspect]
     Indication: NEUROBLASTOMA
     Route: 041
     Dates: start: 20051214, end: 20051217
  4. ENDOXAN [Suspect]
     Indication: NEUROBLASTOMA
     Route: 042
     Dates: start: 20050127, end: 20050320
  5. RANDA [Suspect]
     Indication: NEUROBLASTOMA
     Route: 041
     Dates: start: 20050412, end: 20051018
  6. PINORUBIN [Suspect]
     Indication: NEUROBLASTOMA
     Route: 041
     Dates: start: 20050412, end: 20051018
  7. ADRIAMYCIN PFS [Suspect]
     Indication: NEUROBLASTOMA
     Route: 041
     Dates: start: 20051214, end: 20051214
  8. ALKERAN [Suspect]
     Indication: NEUROBLASTOMA
     Route: 041
     Dates: start: 20051218, end: 20051218
  9. DACARBAZINE [Suspect]
     Indication: NEUROBLASTOMA
     Route: 042
     Dates: start: 20050127, end: 20050320

REACTIONS (2)
  - NEPHROGENIC DIABETES INSIPIDUS [None]
  - RENAL TUBULAR DISORDER [None]
